FAERS Safety Report 14105119 (Version 2)
Quarter: 2017Q4

REPORT INFORMATION
  Report Type: Report from Study
  Country: GB (occurrence: GB)
  Receive Date: 20171018
  Receipt Date: 20171102
  Transmission Date: 20180321
  Serious: Yes (Hospitalization, Other)
  Sender: FDA-Public Use
  Company Number: GB-BRISTOL-MYERS SQUIBB COMPANY-BMS-2017-092112

PATIENT
  Age: 73 Year
  Sex: Male
  Weight: 109.8 kg

DRUGS (5)
  1. IPILIMUMAB [Suspect]
     Active Substance: IPILIMUMAB
     Indication: MALIGNANT MELANOMA
     Dosage: 329 MG, UNK
     Route: 042
     Dates: start: 20170428
  2. CETIRIZINE [Concomitant]
     Active Substance: CETIRIZINE HYDROCHLORIDE
     Indication: RASH
     Dosage: 10 MG, QD
     Route: 048
     Dates: start: 20170519
  3. HYDROCORTISONE. [Concomitant]
     Active Substance: HYDROCORTISONE
     Indication: RASH
     Dosage: 2.5 %, UNK
     Route: 061
     Dates: start: 20170519
  4. NIVOLUMAB [Suspect]
     Active Substance: NIVOLUMAB
     Indication: MALIGNANT MELANOMA
     Dosage: 109 MG, UNK
     Route: 042
     Dates: start: 20170428
  5. AVEENO [Concomitant]
     Active Substance: DIMETHICONE\HOMOSALATE\OCTINOXATE\OCTISALATE\TITANIUM DIOXIDE
     Indication: RASH
     Dosage: UNK
     Route: 061
     Dates: start: 20170519

REACTIONS (1)
  - Peripheral venous disease [Recovered/Resolved]

NARRATIVE: CASE EVENT DATE: 20170824
